FAERS Safety Report 5990598-4 (Version None)
Quarter: 2008Q4

REPORT INFORMATION
  Report Type: 
  Country: None (occurrence: None)
  Receive Date: 20081211
  Receipt Date: 20081205
  Transmission Date: 20090506
  Serious: Yes (Hospitalization)
  Sender: FDA-Public Use
  Company Number: A0753985A

PATIENT
  Age: 72 Year
  Sex: Female
  Weight: 80.5 kg

DRUGS (16)
  1. AVANDIA [Suspect]
     Indication: DIABETES MELLITUS
     Dosage: 8MG PER DAY
     Route: 048
     Dates: start: 20000101, end: 20050101
  2. GLUCOTROL XL [Concomitant]
  3. PREDNISONE TAB [Concomitant]
  4. CELEBREX [Concomitant]
  5. MAXZIDE [Concomitant]
  6. BEXTRA [Concomitant]
  7. ARTHROTEC [Concomitant]
  8. MICRO-K [Concomitant]
  9. HEMOCYTE PLUS [Concomitant]
  10. PROTONIX [Concomitant]
  11. LORTAB [Concomitant]
  12. MOBIC [Concomitant]
  13. PYRIDIUM [Concomitant]
  14. METHOTREXATE [Concomitant]
  15. TEQUIN [Concomitant]
  16. ATIVAN [Concomitant]

REACTIONS (7)
  - ARTERIOSCLEROSIS [None]
  - CARDIAC FAILURE CONGESTIVE [None]
  - CORONARY ARTERY DISEASE [None]
  - MYOCARDIAL INFARCTION [None]
  - MYOCARDIAL ISCHAEMIA [None]
  - PULMONARY HYPERTENSION [None]
  - RENAL FAILURE [None]
